FAERS Safety Report 11993357 (Version 2)
Quarter: 2016Q2

REPORT INFORMATION
  Report Type: Report from Study
  Country: TW (occurrence: TW)
  Receive Date: 20160203
  Receipt Date: 20160504
  Transmission Date: 20160815
  Serious: Yes (Hospitalization, Other)
  Sender: FDA-Public Use
  Company Number: TW-SHIRE-TW201600793

PATIENT
  Age: 9 Year
  Sex: Male

DRUGS (3)
  1. IDURSULFASE [Suspect]
     Active Substance: IDURSULFASE
     Indication: MUCOPOLYSACCHARIDOSIS II
     Dosage: 12 MG, UNKNOWN
     Route: 041
     Dates: start: 20110704
  2. IDURSULFASE [Suspect]
     Active Substance: IDURSULFASE
     Dosage: 18 MG, UNKNOWN
     Route: 041
     Dates: start: 20100707
  3. IDURSULFASE [Suspect]
     Active Substance: IDURSULFASE
     Dosage: 0.5 MG/KG, 1X/WEEK
     Route: 041
     Dates: start: 20080428

REACTIONS (2)
  - Otitis media [Recovered/Resolved]
  - Adenoidal disorder [Recovered/Resolved]

NARRATIVE: CASE EVENT DATE: 20110824
